FAERS Safety Report 15020312 (Version 5)
Quarter: 2019Q2

REPORT INFORMATION
  Report Type: Spontaneous
  Country: FR (occurrence: FR)
  Receive Date: 20180618
  Receipt Date: 20190612
  Transmission Date: 20190711
  Serious: Yes (Death, Life-Threatening, Hospitalization, Other)
  Sender: FDA-Public Use
  Company Number: FR-SUN PHARMACEUTICAL INDUSTRIES LTD-2018RR-175943

PATIENT
  Age: 80 Year
  Sex: Female
  Weight: 50 kg

DRUGS (18)
  1. PARACETAMOL [Suspect]
     Active Substance: ACETAMINOPHEN
     Indication: ANALGESIC THERAPY
     Dosage: 1 DF, QD
     Route: 040
     Dates: start: 20170911, end: 20170911
  2. LEVOTHYROX NF [Suspect]
     Active Substance: LEVOTHYROXINE SODIUM
     Indication: HYPOTHYROIDISM
     Dosage: 175 UG, QD
     Route: 040
     Dates: start: 20170911, end: 20170911
  3. METHOTREXATE. [Concomitant]
     Active Substance: METHOTREXATE
     Indication: NEOPLASM
     Dosage: IN COMBINATION WITH THREE CYCLES OF IMMUNOGLOBULINS
     Route: 065
     Dates: start: 20170801
  4. ELIQUIS [Suspect]
     Active Substance: APIXABAN
     Indication: THROMBOSIS PROPHYLAXIS
     Dosage: 1 DOSAGE FORM, DAILY
     Route: 048
  5. DIGOXIN. [Suspect]
     Active Substance: DIGOXIN
     Indication: ARRHYTHMIA
     Dosage: 0.25/ 1 DF, QD
     Route: 040
     Dates: start: 20170911, end: 20170911
  6. LEVOTHYROXINE SODIUM. [Suspect]
     Active Substance: LEVOTHYROXINE SODIUM
     Indication: HYPOTHYROIDISM
     Dosage: 1 DOSAGE FORM, DAILY
     Route: 048
  7. PREDNISONE. [Suspect]
     Active Substance: PREDNISONE
     Indication: DERMATOMYOSITIS
     Dosage: 45 MG, INTERVAL 1 DAY
     Route: 040
     Dates: start: 20170911, end: 20170911
  8. PARACETAMOL [Suspect]
     Active Substance: ACETAMINOPHEN
     Indication: ANALGESIC THERAPY
     Dosage: 500 MILLIGRAM, QD, CAPSULE
     Route: 048
  9. PARACETAMOL [Suspect]
     Active Substance: ACETAMINOPHEN
     Dosage: 500 MILLIGRAM, BID
     Route: 040
     Dates: start: 20170911, end: 20170911
  10. FUROSEMIDE. [Suspect]
     Active Substance: FUROSEMIDE
     Indication: CARDIAC FAILURE
     Dosage: 20 MG, DAILY
     Route: 042
     Dates: start: 20170911, end: 20170911
  11. LASIX [Suspect]
     Active Substance: FUROSEMIDE
     Indication: CARDIAC FAILURE
     Dosage: 20 MILLIGRAM, QD
     Route: 048
  12. CALCIDOSE /00944201/ [Suspect]
     Active Substance: CALCIUM CARBONATE\CHOLECALCIFEROL
     Indication: OSTEOPOROSIS PROPHYLAXIS
     Dosage: 1 SACHET
     Route: 040
     Dates: start: 20170911, end: 20170911
  13. CORDARONE [Suspect]
     Active Substance: AMIODARONE HYDROCHLORIDE
     Dosage: 200 MILLIGRAM, BID
     Route: 048
     Dates: start: 20170911, end: 20170911
  14. ELIQUIS [Suspect]
     Active Substance: APIXABAN
     Indication: THROMBOSIS PROPHYLAXIS
     Dosage: 2.5 MILLIGRAM, DAILY
     Route: 040
     Dates: start: 20170911, end: 20170911
  15. PREDNISONE ARROW [Suspect]
     Active Substance: PREDNISONE
     Indication: DERMATOMYOSITIS
     Dosage: 1 DOSAGE FORM, QD
     Route: 048
  16. CORDARONE [Suspect]
     Active Substance: AMIODARONE HYDROCHLORIDE
     Indication: ARRHYTHMIA
     Dosage: SCORED TABLET, 1 DF= 1 T, INTERVAL 1 DAY
     Route: 040
     Dates: start: 20170911, end: 20170911
  17. CORDARONE [Suspect]
     Active Substance: AMIODARONE HYDROCHLORIDE
     Dosage: 1 DF= 1 T, INTERVAL 1 DAY
     Route: 040
     Dates: start: 20170911, end: 20170911
  18. ARIPIPRAZOLE. [Concomitant]
     Active Substance: ARIPIPRAZOLE
     Indication: PRODUCT USED FOR UNKNOWN INDICATION
     Route: 065

REACTIONS (4)
  - Cardiac arrest [Fatal]
  - Off label use [Unknown]
  - Incorrect route of product administration [Fatal]
  - Medication error [Fatal]

NARRATIVE: CASE EVENT DATE: 20170911
